FAERS Safety Report 12308668 (Version 1)
Quarter: 2016Q2

REPORT INFORMATION
  Report Type: Spontaneous
  Country: BR (occurrence: BR)
  Receive Date: 20160427
  Receipt Date: 20160427
  Transmission Date: 20160815
  Serious: Yes (Other)
  Sender: FDA-Public Use
  Company Number: BR-HORIZON-VIM-0037-2016

PATIENT
  Age: 63 Year
  Sex: Female

DRUGS (7)
  1. SELOZOK [Interacting]
     Active Substance: METOPROLOL SUCCINATE
     Indication: BLOOD PRESSURE ABNORMAL
     Dosage: 25 MG DAILY
     Route: 048
     Dates: start: 2016
  2. OMEPRAZOLE. [Suspect]
     Active Substance: OMEPRAZOLE
     Indication: PRODUCT USED FOR UNKNOWN INDICATION
     Route: 048
  3. VIMOVO [Suspect]
     Active Substance: ESOMEPRAZOLE MAGNESIUM\NAPROXEN
     Indication: BACK PAIN
     Dosage: TWO TIMES A DAY
     Route: 048
     Dates: start: 20160215, end: 20160217
  4. ARADOIS H [Concomitant]
     Active Substance: HYDROCHLOROTHIAZIDE\LOSARTAN POTASSIUM
     Indication: BLOOD PRESSURE ABNORMAL
     Dates: end: 2016
  5. METOPROLOL. [Suspect]
     Active Substance: METOPROLOL
     Indication: PRODUCT USED FOR UNKNOWN INDICATION
  6. ROSUCOR [Concomitant]
     Active Substance: ROSUVASTATIN CALCIUM
  7. ATENOLOL. [Interacting]
     Active Substance: ATENOLOL
     Indication: BLOOD PRESSURE MEASUREMENT
     Dosage: 50 MG

REACTIONS (17)
  - Drug interaction [Recovered/Resolved]
  - Breast cancer female [Recovered/Resolved]
  - Blood pressure increased [Not Recovered/Not Resolved]
  - Nervousness [Unknown]
  - Breast mass [Not Recovered/Not Resolved]
  - Blood pressure decreased [Recovered/Resolved]
  - Hyperhidrosis [Not Recovered/Not Resolved]
  - Hot flush [Recovered/Resolved]
  - Tremor [Recovered/Resolved]
  - Erythema [Not Recovered/Not Resolved]
  - Blood glucose increased [Not Recovered/Not Resolved]
  - Drug ineffective [Recovered/Resolved]
  - Headache [Recovered/Resolved]
  - Vertebral column mass [Not Recovered/Not Resolved]
  - Back pain [Not Recovered/Not Resolved]
  - Heart rate increased [Not Recovered/Not Resolved]
  - Malaise [Recovered/Resolved]

NARRATIVE: CASE EVENT DATE: 2016
